FAERS Safety Report 15825438 (Version 1)
Quarter: 2019Q1

REPORT INFORMATION
  Report Type: Spontaneous
  Country: SA (occurrence: SA)
  Receive Date: 20190115
  Receipt Date: 20190115
  Transmission Date: 20190417
  Serious: Yes (Hospitalization)
  Sender: FDA-Public Use
  Company Number: SA-KOWA-19EU000040

PATIENT

DRUGS (1)
  1. PITAVASTATIN. [Suspect]
     Active Substance: PITAVASTATIN CALCIUM
     Indication: HYPERLIPIDAEMIA
     Dosage: 4 MG, QD
     Dates: start: 2018

REACTIONS (4)
  - Weight increased [Unknown]
  - Dyspnoea exertional [Recovered/Resolved]
  - Insomnia [Recovered/Resolved]
  - Non-cardiac chest pain [Recovered/Resolved]
